FAERS Safety Report 7653966 (Version 3)
Quarter: 2016Q3

REPORT INFORMATION
  Report Type: Report from Study
  Country: CA (occurrence: CA)
  Receive Date: 20101102
  Receipt Date: 20160812
  Transmission Date: 20161109
  Serious: Yes (Hospitalization, Other)
  Sender: FDA-Public Use
  Company Number: PHHY2010CA53417

PATIENT
  Age: 50 Year
  Sex: Female

DRUGS (2)
  1. SANDOSTATIN LAR DEPOT [Suspect]
     Active Substance: OCTREOTIDE ACETATE
     Indication: ACROMEGALY
     Dosage: 30 MG, QMO (EVERY 4 WEEKS)
     Route: 030
     Dates: start: 20100713
  2. SANDOSTATIN [Suspect]
     Active Substance: OCTREOTIDE ACETATE
     Indication: ACROMEGALY
     Dosage: UNK UNK, TID (FOR 17 DAYS)
     Route: 058
     Dates: start: 20100617, end: 201007

REACTIONS (25)
  - Pyrexia [Unknown]
  - Arthralgia [Not Recovered/Not Resolved]
  - Swelling face [Unknown]
  - Feeling hot [Unknown]
  - Abdominal pain [Unknown]
  - Fatigue [Not Recovered/Not Resolved]
  - Injection site erythema [Recovering/Resolving]
  - Blood pressure diastolic increased [Unknown]
  - Injection site pruritus [Recovering/Resolving]
  - Neck pain [Unknown]
  - Bone pain [Not Recovered/Not Resolved]
  - Hypersensitivity [Unknown]
  - Headache [Unknown]
  - Abdominal pain upper [Unknown]
  - Injection site rash [Recovering/Resolving]
  - Blood pressure increased [Unknown]
  - Peripheral swelling [Unknown]
  - Weight increased [Unknown]
  - Blood pressure systolic increased [Unknown]
  - Groin pain [Unknown]
  - Nausea [Unknown]
  - Blood urine present [Unknown]
  - Constipation [Unknown]
  - Pain in extremity [Unknown]
  - Blood potassium increased [Unknown]

NARRATIVE: CASE EVENT DATE: 201308
